FAERS Safety Report 4728153-6 (Version None)
Quarter: 2005Q3

REPORT INFORMATION
  Report Type: 
  Country: None (occurrence: None)
  Receive Date: 20050728
  Receipt Date: 20050728
  Transmission Date: 20060218
  Serious: Yes (Disabling)
  Sender: FDA-Public Use
  Company Number: None

PATIENT
  Sex: Male
  Weight: 102.0593 kg

DRUGS (10)
  1. FLOVENT [Suspect]
     Indication: ASTHMA
     Dosage: 2 PUFFS BID
  2. SEREVENT [Concomitant]
  3. SINGULAIR [Concomitant]
  4. ALBUTEROL [Concomitant]
  5. PROZAC [Concomitant]
  6. RITALIN [Concomitant]
  7. XANAX [Concomitant]
  8. AMBIEN [Concomitant]
  9. PRINIVIL [Concomitant]
  10. ASPIRIN [Concomitant]

REACTIONS (2)
  - DRUG EFFECT DECREASED [None]
  - PHARMACEUTICAL PRODUCT COMPLAINT [None]
